FAERS Safety Report 11193435 (Version 2)
Quarter: 2015Q3

REPORT INFORMATION
  Report Type: Other
  Country: FR (occurrence: FR)
  Receive Date: 20150616
  Receipt Date: 20150929
  Transmission Date: 20151125
  Serious: Yes (Hospitalization)
  Sender: FDA-Public Use
  Company Number: FR-ASTELLAS-2015EU006859

PATIENT
  Sex: Male

DRUGS (3)
  1. INEXIUM                            /01479302/ [Suspect]
     Active Substance: ESOMEPRAZOLE MAGNESIUM
     Indication: ECZEMA
     Dosage: 1 DF (40 MG) ONCE DAILY
     Route: 048
  2. PROTOPIC [Suspect]
     Active Substance: TACROLIMUS
     Indication: ECZEMA
     Dosage: UNK, UNKNOWN FREQ.
     Route: 003
     Dates: end: 201503
  3. AERIUS [Concomitant]
     Active Substance: DESLORATADINE
     Indication: PRODUCT USED FOR UNKNOWN INDICATION
     Dosage: 5 MG DAILY
     Route: 055

REACTIONS (1)
  - Pancreatitis chronic [Recovering/Resolving]

NARRATIVE: CASE EVENT DATE: 2011
